FAERS Safety Report 23777932 (Version 1)
Quarter: 2024Q2

REPORT INFORMATION
  Report Type: Spontaneous
  Country: FR (occurrence: None)
  Receive Date: 20240424
  Receipt Date: 20240424
  Transmission Date: 20240716
  Serious: Yes (Other)
  Sender: FDA-Public Use
  Company Number: FR-ADDMEDICA-202000017

PATIENT
  Age: 14 Year
  Sex: Male
  Weight: 47.6 kg

DRUGS (4)
  1. SIKLOS [Suspect]
     Active Substance: HYDROXYUREA
     Indication: Directional Doppler flow tests abnormal
     Route: 048
     Dates: start: 20140730, end: 20210115
  2. Oracillin [Concomitant]
     Indication: Product used for unknown indication
     Route: 048
     Dates: start: 200504
  3. FOLIC ACID [Concomitant]
     Active Substance: FOLIC ACID
     Indication: Product used for unknown indication
     Route: 048
     Dates: start: 200504
  4. CHOLECALCIFEROL [Concomitant]
     Active Substance: CHOLECALCIFEROL

REACTIONS (3)
  - Gynaecomastia [Recovered/Resolved]
  - Testicular disorder [Not Recovered/Not Resolved]
  - Azoospermia [Unknown]

NARRATIVE: CASE EVENT DATE: 20191215
